FAERS Safety Report 6882012-1 (Version None)
Quarter: 2010Q3

REPORT INFORMATION
  Report Type: 
  Country: None (occurrence: None)
  Receive Date: 20100728
  Receipt Date: 20100728
  Transmission Date: 20110219
  Serious: No
  Sender: FDA-Public Use
  Company Number: None

PATIENT
  Sex: Male
  Weight: 64.5 kg

DRUGS (1)
  1. HEPARIN [Suspect]
     Indication: DEEP VEIN THROMBOSIS
     Dosage: 580-780 UNITS/HR CONTINUOUS IV INFUSION
     Route: 042
     Dates: start: 20100710

REACTIONS (2)
  - HEPARIN-INDUCED THROMBOCYTOPENIA TEST [None]
  - LABORATORY TEST ABNORMAL [None]
